FAERS Safety Report 13930969 (Version 3)
Quarter: 2018Q3

REPORT INFORMATION
  Report Type: Report from Study
  Country: None (occurrence: US)
  Receive Date: 20170902
  Receipt Date: 20180717
  Transmission Date: 20181010
  Serious: Yes (Hospitalization, Other)
  Sender: FDA-Public Use
  Company Number: US-ABBVIE-17K-163-2089950-00

PATIENT
  Sex: Female

DRUGS (21)
  1. POTASSIUM [Concomitant]
     Active Substance: POTASSIUM
     Indication: PRODUCT USED FOR UNKNOWN INDICATION
  2. AMBIEN [Concomitant]
     Active Substance: ZOLPIDEM TARTRATE
     Indication: INSOMNIA
  3. DOCUSOL [Concomitant]
     Active Substance: DOCUSATE SODIUM
     Indication: CROHN^S DISEASE
  4. IRON [Concomitant]
     Active Substance: IRON
     Indication: PRODUCT USED FOR UNKNOWN INDICATION
  5. BENTYL [Concomitant]
     Active Substance: DICYCLOMINE HYDROCHLORIDE
     Indication: CROHN^S DISEASE
  6. METOPROLOL. [Concomitant]
     Active Substance: METOPROLOL
     Indication: TACHYCARDIA
  7. VITAMIN D [Concomitant]
     Active Substance: CHOLECALCIFEROL
     Indication: PRODUCT USED FOR UNKNOWN INDICATION
  8. CALCIUM [Concomitant]
     Active Substance: CALCIUM
     Indication: PRODUCT USED FOR UNKNOWN INDICATION
  9. KLONOPIN [Concomitant]
     Active Substance: CLONAZEPAM
     Indication: ANXIETY
  10. PRILOSEC [Concomitant]
     Active Substance: OMEPRAZOLE MAGNESIUM
     Indication: PRODUCT USED FOR UNKNOWN INDICATION
  11. MAGNESIUM [Concomitant]
     Active Substance: MAGNESIUM
     Indication: PRODUCT USED FOR UNKNOWN INDICATION
  12. LASIX [Concomitant]
     Active Substance: FUROSEMIDE
     Indication: SWELLING
  13. MEDROXYPROGESTERONE [Concomitant]
     Active Substance: MEDROXYPROGESTERONE
     Indication: HORMONE REPLACEMENT THERAPY
  14. ESTRADIOL. [Concomitant]
     Active Substance: ESTRADIOL
     Indication: HORMONE REPLACEMENT THERAPY
  15. HUMIRA [Suspect]
     Active Substance: ADALIMUMAB
     Indication: CROHN^S DISEASE
     Route: 058
     Dates: start: 2016
  16. AZATHIOPRINE. [Concomitant]
     Active Substance: AZATHIOPRINE
     Indication: CROHN^S DISEASE
  17. PROZAC [Concomitant]
     Active Substance: FLUOXETINE HYDROCHLORIDE
     Indication: DEPRESSION
  18. PREDNISONE. [Suspect]
     Active Substance: PREDNISONE
     Indication: CROHN^S DISEASE
     Route: 048
  19. ABILIFY [Concomitant]
     Active Substance: ARIPIPRAZOLE
     Indication: DEPRESSION
  20. PROBIOTIC [Concomitant]
     Active Substance: PROBIOTICS NOS
     Indication: PRODUCT USED FOR UNKNOWN INDICATION
  21. ATORVASTATIN [Concomitant]
     Active Substance: ATORVASTATIN
     Indication: BLOOD CHOLESTEROL INCREASED

REACTIONS (14)
  - Blood magnesium decreased [Recovered/Resolved]
  - Fatigue [Recovered/Resolved]
  - Aphasia [Recovered/Resolved]
  - Drug effect decreased [Unknown]
  - Sepsis [Recovering/Resolving]
  - Asthenia [Recovered/Resolved]
  - Osteonecrosis [Not Recovered/Not Resolved]
  - Escherichia urinary tract infection [Recovered/Resolved]
  - Diarrhoea [Not Recovered/Not Resolved]
  - Blood potassium decreased [Recovered/Resolved]
  - Diarrhoea [Recovered/Resolved]
  - Nephropathy [Not Recovered/Not Resolved]
  - Gait disturbance [Recovered/Resolved]
  - Clostridium difficile infection [Recovered/Resolved]

NARRATIVE: CASE EVENT DATE: 2017
